FAERS Safety Report 4677378-7 (Version None)
Quarter: 2005Q2

REPORT INFORMATION
  Report Type: 
  Country: None (occurrence: None)
  Receive Date: 20050531
  Receipt Date: 20050525
  Transmission Date: 20051028
  Serious: Yes (Death, Hospitalization, Other)
  Sender: FDA-Public Use
  Company Number: 200514510US

PATIENT
  Sex: Female

DRUGS (1)
  1. LOVENOX [Suspect]
     Route: 058

REACTIONS (4)
  - DEATH [None]
  - DIALYSIS [None]
  - HAEMATEMESIS [None]
  - INCORRECT DOSE ADMINISTERED [None]
